FAERS Safety Report 25973691 (Version 1)
Quarter: 2025Q4

REPORT INFORMATION
  Report Type: Spontaneous
  Country: US (occurrence: US)
  Receive Date: 20251029
  Receipt Date: 20251029
  Transmission Date: 20260118
  Serious: No
  Sender: AMNEAL
  Company Number: US-AMNEAL PHARMACEUTICALS-2025-AMRX-00707

PATIENT
  Sex: Female
  Weight: 77.098 kg

DRUGS (4)
  1. PROGESTERONE [Suspect]
     Active Substance: PROGESTERONE
     Indication: Premature menopause
     Dosage: AT NIGHT
     Route: 048
  2. COMBIPATCH [Concomitant]
     Active Substance: ESTRADIOL\NORETHINDRONE ACETATE
     Indication: Premature menopause
     Dosage: 50/140 DOSE
     Route: 062
  3. COMBIPATCH [Concomitant]
     Active Substance: ESTRADIOL\NORETHINDRONE ACETATE
     Dosage: 50/250
     Route: 062
  4. ESTROGEN NOS [Concomitant]
     Active Substance: ESTROGENS
     Indication: Premature menopause
     Dosage: UNK UNK, 2X/WEEK
     Route: 062

REACTIONS (1)
  - Oesophagitis [Not Recovered/Not Resolved]
